FAERS Safety Report 4427196-X (Version None)
Quarter: 2004Q3

REPORT INFORMATION
  Report Type: 
  Country: None (occurrence: None)
  Receive Date: 20040726
  Receipt Date: 20040510
  Transmission Date: 20050211
  Serious: No
  Sender: FDA-Public Use
  Company Number: USA030538260

PATIENT
  Age: 77 Year
  Sex: Female
  Weight: 48 kg

DRUGS (19)
  1. FORTEO [Suspect]
     Indication: OSTEOPOROSIS
     Dosage: 20 UG DAY
     Dates: start: 20030522
  2. ACTONEL (RISPERONAE SODIUM) [Concomitant]
  3. ATIVAN [Concomitant]
  4. AXID [Concomitant]
  5. CALCIUM WITH VITAMIN D [Concomitant]
  6. MULTIVITAMIN [Concomitant]
  7. DAROVCET-N 100 [Concomitant]
  8. GINKGO BILOBA [Concomitant]
  9. HYDROCHLOROTHIAZIDE [Concomitant]
  10. ICAPS [Concomitant]
  11. NEXIUM [Concomitant]
  12. POTASSIUM CHLORIDE [Concomitant]
  13. PREMARIN [Concomitant]
  14. PROTONIX [Concomitant]
  15. VITAMIN A [Concomitant]
  16. XANAX [Concomitant]
  17. METAMUCIL (PSYLLIUM HYDROOPHILIC MUCILLOID) [Concomitant]
  18. CITRACIL + D [Concomitant]
  19. GAS-X (DIMETICONE, ACTIVATED) [Concomitant]

REACTIONS (4)
  - FEELING HOT [None]
  - HEART RATE INCREASED [None]
  - HYPOACUSIS [None]
  - MEMORY IMPAIRMENT [None]
